FAERS Safety Report 23664969 (Version 4)
Quarter: 2024Q3

REPORT INFORMATION
  Report Type: Report from Study
  Country: DE (occurrence: DE)
  Receive Date: 20240322
  Receipt Date: 20240910
  Transmission Date: 20241017
  Serious: Yes (Hospitalization)
  Sender: ROCHE
  Company Number: DE-ROCHE-3261398

PATIENT
  Age: 40 Year
  Sex: Female

DRUGS (5)
  1. OCREVUS [Suspect]
     Active Substance: OCRELIZUMAB
     Indication: Relapsing-remitting multiple sclerosis
     Dosage: 1ST/2ND INITIAL DOSE: (14 DAYS APART), MAINTENANCE DOSE: DEC/2021, JUN/2022, 05/JAN/2023 (3RD MAINTE
     Route: 042
     Dates: start: 202106
  2. OCREVUS [Suspect]
     Active Substance: OCRELIZUMAB
     Dosage: JUN/2022, 05/JAN/2023 (3RD MAINTENANCE DOSE)
     Route: 042
     Dates: start: 202112
  3. OCREVUS [Suspect]
     Active Substance: OCRELIZUMAB
     Dosage: 05/JAN/2023 (3RD MAINTENANCE DOSE)
     Route: 042
     Dates: start: 202206
  4. OCREVUS [Suspect]
     Active Substance: OCRELIZUMAB
     Route: 042
     Dates: start: 20230105
  5. TROSPIUM CHLORIDE [Concomitant]
     Active Substance: TROSPIUM CHLORIDE

REACTIONS (14)
  - Vaginal disorder [Recovered/Resolved]
  - Fatigue [Recovered/Resolved]
  - Cystitis escherichia [Recovered/Resolved]
  - Abdominal distension [Recovered/Resolved]
  - Upper limb fracture [Recovered/Resolved]
  - Foot fracture [Recovered/Resolved]
  - Fall [Unknown]
  - Fracture pain [Recovered/Resolved]
  - Fatigue [Recovered/Resolved]
  - Disturbance in attention [Not Recovered/Not Resolved]
  - Cystitis noninfective [Not Recovered/Not Resolved]
  - Abdominal pain lower [Recovered/Resolved]
  - Muscular weakness [Not Recovered/Not Resolved]
  - Nephrolithiasis [Recovered/Resolved]

NARRATIVE: CASE EVENT DATE: 20220101
